FAERS Safety Report 15030286 (Version 4)
Quarter: 2018Q3

REPORT INFORMATION
  Report Type: Spontaneous
  Country: CA (occurrence: CA)
  Receive Date: 20180619
  Receipt Date: 20180802
  Transmission Date: 20181010
  Serious: Yes (Other)
  Sender: FDA-Public Use
  Company Number: CA-PFIZER INC-2017295971

PATIENT
  Age: 58 Year
  Sex: Female
  Weight: 43 kg

DRUGS (19)
  1. INFLECTRA [Suspect]
     Active Substance: INFLIXIMAB-DYYB
     Dosage: 225 MG, CYCLIC (EVERY 0, 2, 6 WEEKS, THEN EVERY 8 WEEKS)
     Route: 042
     Dates: start: 20171206
  2. POLYSPORIN [Concomitant]
     Active Substance: BACITRACIN ZINC\POLYMYXIN B SULFATE
     Dosage: UNK
     Route: 065
     Dates: start: 20170625
  3. ENTOCORT [Concomitant]
     Active Substance: BUDESONIDE
     Dosage: 3 MG, 2X/DAY
     Route: 048
     Dates: start: 2014
  4. OLESTYR [Concomitant]
     Active Substance: CHOLESTYRAMINE
     Dosage: 3 DF, DAILY (3 PACKS/ DAY)
     Route: 065
     Dates: start: 2014
  5. INFLECTRA [Suspect]
     Active Substance: INFLIXIMAB-DYYB
     Indication: CROHN^S DISEASE
     Dosage: 225 MG, CYCLIC (EVERY 0, 2, 6 WEEKS, THEN EVERY 8 WEEKS)
     Route: 042
     Dates: start: 20170705
  6. INFLECTRA [Suspect]
     Active Substance: INFLIXIMAB-DYYB
     Dosage: 225 MG, CYCLIC (EVERY 0, 2, 6 WEEKS, THEN EVERY 8 WEEKS)
     Route: 042
     Dates: start: 20180328, end: 20180328
  7. FERROUS GLUCONATE [Concomitant]
     Active Substance: FERROUS GLUCONATE
     Dosage: 300 MG, 1X/DAY
     Route: 048
     Dates: start: 1984
  8. ZINC. [Concomitant]
     Active Substance: ZINC
     Dosage: 5 MG, 1X/DAY
     Route: 048
  9. VITAMIN B12 [Concomitant]
     Active Substance: CYANOCOBALAMIN
     Dosage: 1200 UG, 1X/DAY
     Route: 048
  10. ACTONEL [Concomitant]
     Active Substance: RISEDRONATE SODIUM
     Dosage: 150 MG, MONTHLY (ONCE PER MONTH)
     Route: 048
  11. INFLECTRA [Suspect]
     Active Substance: INFLIXIMAB-DYYB
     Dosage: 225 MG, CYCLIC (EVERY 0, 2, 6 WEEKS, THEN EVERY 8 WEEKS)
     Route: 042
     Dates: start: 20171011, end: 20171011
  12. INFLECTRA [Suspect]
     Active Substance: INFLIXIMAB-DYYB
     Dosage: 225 MG, CYCLIC (EVERY 0, 2, 6 WEEKS, THEN EVERY 8 WEEKS)
     Route: 042
     Dates: start: 20180131
  13. VITALUX [Concomitant]
     Active Substance: MINERALS\VITAMINS
     Dosage: UNK UNK, 1X/DAY (QD)
     Route: 048
  14. TRAVATAN [Concomitant]
     Active Substance: TRAVOPROST
     Dosage: 2 GTT, 1X/DAY (1 DROP IN EACH EYE AT NIGHT)
     Route: 047
  15. INFLECTRA [Suspect]
     Active Substance: INFLIXIMAB-DYYB
     Dosage: 220 MG, EVERY 8 WEEKS
     Route: 042
     Dates: start: 20180523
  16. PANTOLOC [Suspect]
     Active Substance: PANTOPRAZOLE SODIUM
     Indication: DYSPEPSIA
     Dosage: 1 DF, 1X/DAY: ONE PILL IN THE MORNING
     Route: 048
     Dates: start: 2018, end: 2018
  17. MULTI VIT [Concomitant]
     Dosage: UNK UNK, 1X/DAY
     Route: 048
  18. CALCIUM [Concomitant]
     Active Substance: CALCIUM
     Dosage: 500 MG, 1X/DAY
     Route: 048
  19. BUDESONIDE. [Concomitant]
     Active Substance: BUDESONIDE
     Dosage: 3 MG, FOR 2 WEEKS THEN STOP

REACTIONS (29)
  - Drug effect incomplete [Unknown]
  - Somnolence [Unknown]
  - Rash papular [Not Recovered/Not Resolved]
  - Soft tissue inflammation [Not Recovered/Not Resolved]
  - Malaise [Unknown]
  - Ecchymosis [Recovering/Resolving]
  - Pyrexia [Unknown]
  - Dyspepsia [Unknown]
  - Inflammation [Not Recovered/Not Resolved]
  - Oropharyngeal pain [Unknown]
  - Ear infection [Recovered/Resolved]
  - Joint injury [Unknown]
  - Pain [Unknown]
  - Abdominal pain [Recovered/Resolved]
  - Peripheral swelling [Unknown]
  - Cough [Unknown]
  - Chest discomfort [Unknown]
  - Pain in extremity [Unknown]
  - Joint swelling [Not Recovered/Not Resolved]
  - Fall [Unknown]
  - Nasal congestion [Unknown]
  - Cough [Unknown]
  - Dehydration [Unknown]
  - Arthralgia [Unknown]
  - Lower respiratory tract infection [Not Recovered/Not Resolved]
  - Contusion [Not Recovered/Not Resolved]
  - Nasopharyngitis [Not Recovered/Not Resolved]
  - Peripheral swelling [Not Recovered/Not Resolved]
  - Pain [Unknown]

NARRATIVE: CASE EVENT DATE: 201707
